FAERS Safety Report 20815323 (Version 3)
Quarter: 2022Q2

REPORT INFORMATION
  Report Type: Spontaneous
  Country: CO (occurrence: CO)
  Receive Date: 20220511
  Receipt Date: 20220624
  Transmission Date: 20220721
  Serious: No
  Sender: FDA-Public Use
  Company Number: CO-PFIZER INC-202200617040

PATIENT
  Age: 10 Year
  Sex: Male

DRUGS (1)
  1. GENOTROPIN [Suspect]
     Active Substance: SOMATROPIN
     Dosage: 0.8 MG (UNSPECIFIED FREQUENCY)
     Route: 058

REACTIONS (5)
  - Device issue [Unknown]
  - Device leakage [Unknown]
  - Device physical property issue [Unknown]
  - Device failure [Unknown]
  - Intentional device misuse [Unknown]
